FAERS Safety Report 5794642-9 (Version None)
Quarter: 2008Q2

REPORT INFORMATION
  Report Type: 
  Country: None (occurrence: None)
  Receive Date: 20080627
  Receipt Date: 20080627
  Transmission Date: 20081010
  Serious: Yes (Hospitalization)
  Sender: FDA-Public Use
  Company Number: None

PATIENT
  Sex: Female
  Weight: 88.4514 kg

DRUGS (9)
  1. COUMADIN [Suspect]
     Indication: ATRIAL FIBRILLATION
     Dosage: 5MG PO QDAY  PRIOR TO ADMISSION
     Route: 048
  2. TOPROL-XL [Concomitant]
  3. PRAVASTATIN [Concomitant]
  4. FOLIC ACID [Concomitant]
  5. TESSALON [Concomitant]
  6. FORADIL [Concomitant]
  7. AMIODARONE HCL [Concomitant]
  8. ALBUTEROL [Concomitant]
  9. XALATAN [Concomitant]

REACTIONS (4)
  - COAGULOPATHY [None]
  - DYSPHAGIA [None]
  - DYSPNOEA [None]
  - TONGUE HAEMATOMA [None]
